FAERS Safety Report 6788594-2 (Version None)
Quarter: 2010Q2

REPORT INFORMATION
  Report Type: 
  Country: None (occurrence: None)
  Receive Date: 20100623
  Receipt Date: 20080603
  Transmission Date: 20101027
  Serious: No
  Sender: FDA-Public Use
  Company Number: US-PFIZER INC-2008020279

PATIENT
  Age: 86 Year
  Sex: Female

DRUGS (3)
  1. XALATAN [Suspect]
  2. HYDROCHLOROTHIAZIDE [Concomitant]
     Indication: CARDIAC DISORDER
  3. LISINOPRIL [Concomitant]
     Indication: CARDIAC DISORDER

REACTIONS (2)
  - EYE HAEMORRHAGE [None]
  - INTRAOCULAR PRESSURE DECREASED [None]
